FAERS Safety Report 11043589 (Version 2)
Quarter: 2019Q1

REPORT INFORMATION
  Report Type: Spontaneous
  Country: FR (occurrence: FR)
  Receive Date: 20150417
  Receipt Date: 20190114
  Transmission Date: 20190417
  Serious: Yes (Hospitalization)
  Sender: FDA-Public Use
  Company Number: FR-ORION CORPORATION ORION PHARMA-ENTC2015-0135

PATIENT
  Age: 77 Year
  Sex: Male

DRUGS (5)
  1. ASPEGIC (ACETYLSALICYLATE LYSINE) [Concomitant]
     Active Substance: ASPIRIN DL-LYSINE
     Dosage: STRENGTH: 100 OT
     Route: 065
  2. STALEVO [Suspect]
     Active Substance: CARBIDOPA\ENTACAPONE\LEVODOPA
     Indication: PRODUCT USED FOR UNKNOWN INDICATION
     Dosage: STRENGTH: 200 OT
     Route: 048
     Dates: end: 20141112
  3. PAROXETINE ARROW [Suspect]
     Active Substance: PAROXETINE
     Indication: PRODUCT USED FOR UNKNOWN INDICATION
     Dosage: STRENGTH: 20 OT
     Route: 048
     Dates: end: 20141115
  4. EXELON [Suspect]
     Active Substance: RIVASTIGMINE TARTRATE
     Indication: PARKINSON^S DISEASE
     Route: 062
     Dates: end: 201405
  5. EXELON [Suspect]
     Active Substance: RIVASTIGMINE TARTRATE
     Route: 062
     Dates: start: 20140610, end: 20141112

REACTIONS (7)
  - Hallucination [Recovering/Resolving]
  - Facial bones fracture [Unknown]
  - Confusional state [Recovering/Resolving]
  - Aggression [Unknown]
  - Cognitive disorder [Unknown]
  - Fall [Unknown]
  - Non-24-hour sleep-wake disorder [Unknown]

NARRATIVE: CASE EVENT DATE: 201410
